FAERS Safety Report 13826436 (Version 4)
Quarter: 2022Q1

REPORT INFORMATION
  Report Type: Report from Study
  Country: US (occurrence: US)
  Receive Date: 20170802
  Receipt Date: 20220113
  Transmission Date: 20220423
  Serious: Yes (Other)
  Sender: FDA-Public Use
  Company Number: US-JAZZ-2017-US-009891

PATIENT
  Sex: Male

DRUGS (43)
  1. XYREM [Suspect]
     Active Substance: SODIUM OXYBATE
     Indication: Narcolepsy
     Dosage: 4 G, BID
     Route: 048
     Dates: start: 200612, end: 200612
  2. XYREM [Suspect]
     Active Substance: SODIUM OXYBATE
     Indication: Cataplexy
     Dosage: DOSE ADJUSTMENT
     Route: 048
     Dates: start: 200612, end: 201707
  3. XYREM [Suspect]
     Active Substance: SODIUM OXYBATE
     Dosage: 4.5 G, BID
     Route: 048
     Dates: start: 200707
  4. EPIDIOLEX [Suspect]
     Active Substance: CANNABIDIOL
     Indication: Seizure
     Dosage: UNK
  5. ALBUTEROL\IPRATROPIUM [Concomitant]
     Active Substance: ALBUTEROL\IPRATROPIUM
     Indication: Product used for unknown indication
     Dosage: UNK
     Dates: start: 20140925
  6. DICLOFENAC SODIUM [Concomitant]
     Active Substance: DICLOFENAC SODIUM
     Indication: Product used for unknown indication
     Dosage: UNK
     Dates: start: 201607
  7. CLARITIN                           /00413701/ [Concomitant]
     Indication: Product used for unknown indication
     Dosage: UNK
     Dates: start: 20141125
  8. ERYTHROMYCIN [Concomitant]
     Active Substance: ERYTHROMYCIN
     Indication: Product used for unknown indication
     Dosage: UNK
     Dates: start: 20141125
  9. FLONASE                            /00908302/ [Concomitant]
     Indication: Product used for unknown indication
     Dosage: UNK UNK, QD
     Dates: start: 20141125
  10. ONFI [Concomitant]
     Active Substance: CLOBAZAM
     Indication: Product used for unknown indication
     Dosage: UNK
     Dates: start: 20141125, end: 20151231
  11. SINGULAIR [Concomitant]
     Active Substance: MONTELUKAST SODIUM
     Indication: Product used for unknown indication
     Dosage: UNK, QD
     Dates: start: 20141125
  12. VITAMIN D                          /00107901/ [Concomitant]
     Indication: Product used for unknown indication
     Dosage: UNK
     Dates: start: 20141125, end: 201607
  13. CLONIDINE HYDROCHLORIDE [Concomitant]
     Active Substance: CLONIDINE HYDROCHLORIDE
     Indication: Product used for unknown indication
     Dosage: UNK
     Dates: start: 200801
  14. ALBUTEROL SULFATE [Concomitant]
     Active Substance: ALBUTEROL SULFATE
     Indication: Product used for unknown indication
     Dosage: UNK
     Dates: start: 20010101
  15. ALLEGRA [Concomitant]
     Active Substance: FEXOFENADINE HYDROCHLORIDE
     Indication: Product used for unknown indication
     Dosage: UNK
     Dates: start: 20010101, end: 20010101
  16. CALCIUM ANTACID [Concomitant]
     Active Substance: CALCIUM CARBONATE
     Indication: Product used for unknown indication
     Dosage: UNK
     Dates: start: 20010101
  17. CLONIDINE HYDROCHLORIDE [Concomitant]
     Active Substance: CLONIDINE HYDROCHLORIDE
     Indication: Product used for unknown indication
     Dosage: UNK
     Dates: start: 20010101, end: 20070101
  18. IPRATROPIUM [Concomitant]
     Active Substance: IPRATROPIUM
     Indication: Product used for unknown indication
     Dosage: UNK
     Dates: start: 20010101
  19. KLONOPIN [Concomitant]
     Active Substance: CLONAZEPAM
     Indication: Product used for unknown indication
     Dosage: UNK
     Dates: start: 20010101, end: 201607
  20. LEXAPRO [Concomitant]
     Active Substance: ESCITALOPRAM OXALATE
     Indication: Product used for unknown indication
     Dosage: UNK
     Dates: start: 20010101
  21. MYSOLINE [Concomitant]
     Active Substance: PRIMIDONE
     Indication: Product used for unknown indication
     Dosage: UNK
     Dates: start: 20010101, end: 20010101
  22. PATANOL [Concomitant]
     Active Substance: OLOPATADINE HYDROCHLORIDE
     Indication: Product used for unknown indication
     Dosage: UNK
     Dates: start: 20010101
  23. PREVACID [Concomitant]
     Active Substance: LANSOPRAZOLE
     Indication: Product used for unknown indication
     Dosage: UNK
     Dates: start: 20010101
  24. PULMICORT TURBUHALER [Concomitant]
     Active Substance: BUDESONIDE
     Indication: Product used for unknown indication
     Dosage: UNK
     Dates: start: 20010101
  25. SYMBICORT [Concomitant]
     Active Substance: BUDESONIDE\FORMOTEROL FUMARATE DIHYDRATE
     Indication: Product used for unknown indication
     Dosage: UNK
     Dates: start: 20010101, end: 20010101
  26. TYLENOL EXTRA STRENGTH [Concomitant]
     Active Substance: ACETAMINOPHEN
     Indication: Product used for unknown indication
     Dosage: UNK
     Dates: start: 20010101
  27. ALLEGRA ALLERGY NON DROWSY [Concomitant]
     Indication: Product used for unknown indication
     Dosage: UNK
  28. XOPENEX [Concomitant]
     Active Substance: LEVALBUTEROL HYDROCHLORIDE
     Indication: Product used for unknown indication
     Dosage: UNK
     Dates: start: 20010101, end: 20010101
  29. CALCIUM CARBONATE [Concomitant]
     Active Substance: CALCIUM CARBONATE
     Indication: Product used for unknown indication
     Dosage: UNK
  30. CLONAZEPAM CEVALLOS [Concomitant]
     Indication: Product used for unknown indication
  31. DIASTAT ACUDIAL [Concomitant]
     Active Substance: DIAZEPAM
     Indication: Product used for unknown indication
     Dosage: UNK
  32. DOCUSATE SODIUM\SENNOSIDE A\SENNOSIDE B [Concomitant]
     Active Substance: DOCUSATE SODIUM\SENNOSIDE A\SENNOSIDE B
     Indication: Product used for unknown indication
  33. FORTEO [Concomitant]
     Active Substance: TERIPARATIDE
     Indication: Product used for unknown indication
  34. IBUPROFEN                          /00109205/ [Concomitant]
     Indication: Product used for unknown indication
     Dosage: UNK
  35. KEPPRA [Concomitant]
     Active Substance: LEVETIRACETAM
     Indication: Product used for unknown indication
     Dosage: UNK
  36. MUPIROCIN [Concomitant]
     Active Substance: MUPIROCIN
     Indication: Product used for unknown indication
     Dosage: UNK
  37. NYSTATIN                           /00982301/ [Concomitant]
     Indication: Product used for unknown indication
     Dosage: UNK
  38. PATADAY [Concomitant]
     Active Substance: OLOPATADINE HYDROCHLORIDE
     Indication: Product used for unknown indication
     Dosage: UNK
  39. RANITIDINE [Concomitant]
     Active Substance: RANITIDINE
     Indication: Product used for unknown indication
     Dosage: UNK
  40. TRIPLE ANTIBIOTIC                  /00038301/ [Concomitant]
     Indication: Product used for unknown indication
     Dosage: UNK
  41. VITAMIN D3 [Concomitant]
     Active Substance: CHOLECALCIFEROL
     Indication: Product used for unknown indication
     Dosage: UNK
  42. PROLIA [Concomitant]
     Active Substance: DENOSUMAB
     Dosage: UNK
     Dates: start: 20170501
  43. LORATADINE [Concomitant]
     Active Substance: LORATADINE
     Indication: Product used for unknown indication
     Dosage: UNK
     Dates: start: 20181001

REACTIONS (4)
  - Generalised tonic-clonic seizure [Not Recovered/Not Resolved]
  - Condition aggravated [Not Recovered/Not Resolved]
  - Spinal fracture [Unknown]
  - Diarrhoea [Unknown]
